FAERS Safety Report 13950721 (Version 4)
Quarter: 2017Q4

REPORT INFORMATION
  Report Type: Report from Study
  Country: None (occurrence: CH)
  Receive Date: 20170908
  Receipt Date: 20171101
  Transmission Date: 20180320
  Serious: Yes (Hospitalization, Other)
  Sender: FDA-Public Use
  Company Number: CH-ABBVIE-17K-151-2091843-00

PATIENT
  Age: 75 Year
  Sex: Male

DRUGS (9)
  1. PARAGAR [Concomitant]
     Indication: PRODUCT USED FOR UNKNOWN INDICATION
     Dosage: FORM STRENGTH 65MG/2000MG/15MG
     Route: 048
  2. MOVICOL [Concomitant]
     Active Substance: POLYETHYLENE GLYCOL 3350\POTASSIUM CHLORIDE\SODIUM BICARBONATE\SODIUM CHLORIDE
     Indication: PRODUCT USED FOR UNKNOWN INDICATION
     Route: 048
  3. RESUBIN ENERGY FIBRE [Concomitant]
     Indication: PRODUCT USED FOR UNKNOWN INDICATION
     Dosage: FORM STRENGTH 5.6G / 5.8G / 18.8G
  4. NOVALGIN [Concomitant]
     Active Substance: METAMIZOLE SODIUM
     Indication: PRODUCT USED FOR UNKNOWN INDICATION
     Dosage: 20 DROPS = 500 MG
  5. DUODOPA [Suspect]
     Active Substance: CARBIDOPA\LEVODOPA
     Indication: PRODUCT USED FOR UNKNOWN INDICATION
     Dosage: MORNING DOSE 9.0ML?CONTINUOUS RATE 2.0ML/H?EXTRA DOSE 1.0ML
     Route: 050
     Dates: start: 20130305
  6. DAFALGAN [Concomitant]
     Active Substance: ACETAMINOPHEN
     Indication: PRODUCT USED FOR UNKNOWN INDICATION
  7. TRAMAL [Concomitant]
     Active Substance: TRAMADOL
     Indication: PRODUCT USED FOR UNKNOWN INDICATION
     Route: 048
  8. MYDOCALM MITE [Concomitant]
     Indication: PRODUCT USED FOR UNKNOWN INDICATION
     Route: 048
  9. NEXIUM GRANULA [Concomitant]
     Indication: PRODUCT USED FOR UNKNOWN INDICATION
     Route: 048

REACTIONS (11)
  - Skin cancer [Unknown]
  - Hairy cell leukaemia [Not Recovered/Not Resolved]
  - Normochromic normocytic anaemia [Unknown]
  - Stoma site hypergranulation [Not Recovered/Not Resolved]
  - Sinus bradycardia [Unknown]
  - Device dislocation [Recovered/Resolved]
  - Dehydration [Unknown]
  - Eczema [Unknown]
  - Fall [Not Recovered/Not Resolved]
  - Full blood count abnormal [Unknown]
  - Generalised tonic-clonic seizure [Recovered/Resolved]

NARRATIVE: CASE EVENT DATE: 2013
